FAERS Safety Report 12088290 (Version 5)
Quarter: 2016Q4

REPORT INFORMATION
  Report Type: Report from Study
  Country: US (occurrence: US)
  Receive Date: 20160218
  Receipt Date: 20161126
  Transmission Date: 20170206
  Serious: Yes (Life-Threatening, Other)
  Sender: FDA-Public Use
  Company Number: US-AMGEN-USASL2016017703

PATIENT
  Age: 80 Year
  Sex: Female
  Weight: 63.49 kg

DRUGS (5)
  1. REPATHA [Suspect]
     Active Substance: EVOLOCUMAB
     Dosage: 140 MG, Q2WK
     Route: 065
  2. REPATHA [Suspect]
     Active Substance: EVOLOCUMAB
     Indication: BLOOD CHOLESTEROL INCREASED
     Dosage: 140 MG/ML, Q2WK
     Route: 065
     Dates: start: 20150928, end: 20160203
  3. NORVASC [Concomitant]
     Active Substance: AMLODIPINE BESYLATE
     Dosage: 5 MG, UNK
  4. CHONDROITIN [Concomitant]
     Active Substance: CHONDROITIN
  5. NEXIUM [Concomitant]
     Active Substance: ESOMEPRAZOLE MAGNESIUM

REACTIONS (14)
  - Mobility decreased [Recovering/Resolving]
  - Hypersensitivity [Unknown]
  - Arthralgia [Recovering/Resolving]
  - Feeling abnormal [Unknown]
  - Cough [Unknown]
  - Arthropathy [Recovering/Resolving]
  - Fatigue [Unknown]
  - Abasia [Recovering/Resolving]
  - Activities of daily living impaired [Recovering/Resolving]
  - Urinary tract infection [Recovering/Resolving]
  - Muscle spasms [Unknown]
  - Diarrhoea [Unknown]
  - Joint swelling [Unknown]
  - Blood pressure increased [Unknown]

NARRATIVE: CASE EVENT DATE: 20160205
